FAERS Safety Report 4711310-2 (Version None)
Quarter: 2005Q3

REPORT INFORMATION
  Report Type: 
  Country: None (occurrence: None)
  Receive Date: 20050711
  Receipt Date: 20050623
  Transmission Date: 20060218
  Serious: Yes (Hospitalization)
  Sender: FDA-Public Use
  Company Number: 2005-00193

PATIENT
  Age: 71 Year
  Sex: Female
  Weight: 71.2 kg

DRUGS (4)
  1. VELCADE [Suspect]
     Indication: MULTIPLE MYELOMA
     Dosage: 2.30 MG, 2/WEEK, IV BOLUS
     Route: 040
     Dates: start: 20050111, end: 20050101
  2. VELCADE [Suspect]
     Indication: MULTIPLE MYELOMA
     Dosage: 2.30 MG, 2/WEEK, IV BOLUS
     Route: 040
     Dates: start: 20050215, end: 20050225
  3. KYTRIL [Concomitant]
  4. AREDIA [Concomitant]

REACTIONS (9)
  - BLOOD IMMUNOGLOBULIN G DECREASED [None]
  - CAROTID ARTERY DISEASE [None]
  - DEMYELINATION [None]
  - DIARRHOEA [None]
  - MITRAL VALVE INCOMPETENCE [None]
  - NAUSEA [None]
  - PULMONARY HYPERTENSION [None]
  - TRANSIENT ISCHAEMIC ATTACK [None]
  - TRICUSPID VALVE INCOMPETENCE [None]
